FAERS Safety Report 18584623 (Version 2)
Quarter: 2021Q1

REPORT INFORMATION
  Report Type: Spontaneous
  Country: SE (occurrence: SE)
  Receive Date: 20201207
  Receipt Date: 20210222
  Transmission Date: 20210419
  Serious: Yes (Death)
  Sender: FDA-Public Use
  Company Number: NVSC2020SE324073

PATIENT
  Age: 65 Year
  Sex: Male

DRUGS (17)
  1. INOLAXOL [Concomitant]
     Active Substance: HERBALS\KARAYA GUM
     Indication: PRODUCT USED FOR UNKNOWN INDICATION
     Dosage: 1 UNK,QD (ORALT PULVER I DOSP?SE)
     Route: 065
     Dates: start: 20200924
  2. OXALIPLATIN. [Suspect]
     Active Substance: OXALIPLATIN
     Indication: ADJUVANT THERAPY
     Dosage: 235 MG(DAG 1 /VAR 3:E V 235 MG KUR 1, 8 SEPTEMBER KUR 2, 29 SEPTEMBE)
     Route: 042
     Dates: start: 20200908, end: 20200929
  3. METFORMIN [Concomitant]
     Active Substance: METFORMIN HYDROCHLORIDE
     Indication: PRODUCT USED FOR UNKNOWN INDICATION
     Dosage: 2550 MG,QD
     Route: 065
     Dates: start: 20170907
  4. RAMIPRIL. [Concomitant]
     Active Substance: RAMIPRIL
     Indication: PRODUCT USED FOR UNKNOWN INDICATION
     Dosage: 10 MG,QD
     Route: 065
     Dates: start: 20170908
  5. MINDIAB [Concomitant]
     Active Substance: GLIPIZIDE
     Indication: PRODUCT USED FOR UNKNOWN INDICATION
     Dosage: 10 MG,QD
     Route: 065
     Dates: start: 20170908
  6. BRICANYL [Concomitant]
     Active Substance: TERBUTALINE SULFATE
     Indication: PRODUCT USED FOR UNKNOWN INDICATION
     Dosage: UNK(1 INHALATION VID BEHOV, 0,5 MG/DOS )
     Route: 065
     Dates: start: 20190206
  7. MINIDERM [Concomitant]
     Indication: PRODUCT USED FOR UNKNOWN INDICATION
     Dosage: 2 UNK,QD(KRAM)
     Route: 065
     Dates: start: 20170907
  8. ATORVASTATIN [Concomitant]
     Active Substance: ATORVASTATIN
     Indication: PRODUCT USED FOR UNKNOWN INDICATION
     Dosage: 20 MG,QD
     Route: 065
     Dates: start: 20180721
  9. HYDROCHLOROTHIAZIDE. [Concomitant]
     Active Substance: HYDROCHLOROTHIAZIDE
     Indication: PRODUCT USED FOR UNKNOWN INDICATION
     Dosage: 25 MG,QD
     Route: 065
     Dates: start: 20170908
  10. CAPECITABINE. [Suspect]
     Active Substance: CAPECITABINE
     Indication: ADJUVANT THERAPY
     Dosage: UNK(DAG 1?15 /VAR 3:E VECKA DOSERING 1800 MG X 2 )
     Route: 048
     Dates: start: 20200908, end: 20201010
  11. BETNOVAT [Concomitant]
     Active Substance: BETAMETHASONE
     Indication: PRODUCT USED FOR UNKNOWN INDICATION
     Dosage: 2 UNK,QD (0,1 % KR?M)
     Route: 065
     Dates: start: 20170929
  12. JANUVIA [Concomitant]
     Active Substance: SITAGLIPTIN PHOSPHATE
     Indication: PRODUCT USED FOR UNKNOWN INDICATION
     Dosage: 100 MG,QD
     Route: 065
     Dates: start: 20170908
  13. ALVEDON [Concomitant]
     Active Substance: ACETAMINOPHEN
     Indication: PRODUCT USED FOR UNKNOWN INDICATION
     Dosage: 2 DF (2 TABLETTER VID BEHOV 3G?NGER DAGLIGEN)
     Route: 065
     Dates: start: 20200812
  14. BUFOMIX [Concomitant]
     Active Substance: BUDESONIDE\FORMOTEROL FUMARATE
     Indication: PRODUCT USED FOR UNKNOWN INDICATION
     Dosage: UNK(160 MIKROGRAM/4,5 MIKROGRAM/INHALATION INHALATIONSPU, 2 INHALATIONER 2 GANGER DAGLIGEN)
     Route: 065
     Dates: start: 20190206
  15. LORATADINE. [Concomitant]
     Active Substance: LORATADINE
     Indication: PRODUCT USED FOR UNKNOWN INDICATION
     Dosage: 1 DF, PRN(1 TABLETT VID BEHOV)
     Route: 065
     Dates: start: 20170907
  16. BETNOVAT [Concomitant]
     Active Substance: BETAMETHASONE
     Dosage: UNK(KUTAN EMULSION) (STENGTH: 1 MG/ML)
     Route: 065
     Dates: start: 20171129
  17. OMEPRAZOLE. [Concomitant]
     Active Substance: OMEPRAZOLE
     Indication: PRODUCT USED FOR UNKNOWN INDICATION
     Dosage: 40 MG,QD
     Route: 065
     Dates: start: 20170908

REACTIONS (6)
  - Thrombocytopenia [Fatal]
  - Septic shock [Fatal]
  - Gastrointestinal mucosal necrosis [Fatal]
  - Small intestinal haemorrhage [Fatal]
  - Gastrointestinal oedema [Fatal]
  - Febrile neutropenia [Fatal]

NARRATIVE: CASE EVENT DATE: 202010
